FAERS Safety Report 9635915 (Version 5)
Quarter: 2021Q2

REPORT INFORMATION
  Report Type: Spontaneous
  Country: US (occurrence: US)
  Receive Date: 20131021
  Receipt Date: 20210517
  Transmission Date: 20210717
  Serious: Yes (Hospitalization, Other)
  Sender: FDA-Public Use
  Company Number: US-IAC JAPAN XML-USA-2013-0103755

PATIENT
  Sex: Female
  Weight: 66.67 kg

DRUGS (3)
  1. ACETAMINOPHEN. [Concomitant]
     Active Substance: ACETAMINOPHEN
     Indication: PRODUCT USED FOR UNKNOWN INDICATION
     Dosage: 325 MG, Q6H PRN
     Route: 048
  2. BUTRANS [Suspect]
     Active Substance: BUPRENORPHINE
     Indication: PRODUCT USED FOR UNKNOWN INDICATION
     Dosage: UNKNOWN
     Route: 062
     Dates: start: 20120427, end: 20120508
  3. MORPHINE SULFATE (SIMILAR TO NDA 19?516) [Suspect]
     Active Substance: MORPHINE SULFATE
     Indication: PRODUCT USED FOR UNKNOWN INDICATION
     Dosage: UNKNOWN
     Route: 062

REACTIONS (31)
  - Overdose [Unknown]
  - Fear [Unknown]
  - Insomnia [Unknown]
  - Joint stiffness [Unknown]
  - Confusional state [Unknown]
  - Fibromyalgia [Unknown]
  - Stress [Unknown]
  - Pain [Unknown]
  - Illness [Unknown]
  - Headache [Unknown]
  - Depressed mood [Unknown]
  - Migraine with aura [Unknown]
  - Feeling abnormal [Unknown]
  - Near death experience [Unknown]
  - Vision blurred [Unknown]
  - Arthritis [Unknown]
  - Myalgia [Unknown]
  - Drug withdrawal syndrome [Unknown]
  - Constipation [Unknown]
  - Back pain [Unknown]
  - Disorientation [Unknown]
  - Photopsia [Unknown]
  - Vertigo [Unknown]
  - Aspartate aminotransferase increased [Unknown]
  - Arthralgia [Unknown]
  - Vomiting [Unknown]
  - Fatigue [Unknown]
  - Nightmare [Unknown]
  - Sleep disorder [Unknown]
  - Nausea [Unknown]
  - Anxiety [Unknown]
